FAERS Safety Report 8410571-6 (Version None)
Quarter: 2012Q2

REPORT INFORMATION
  Report Type: 
  Country: None (occurrence: None)
  Receive Date: 20120529
  Receipt Date: 19990923
  Transmission Date: 20120825
  Serious: Yes (Hospitalization)
  Sender: FDA-Public Use
  Company Number: 02100-USA-99-0160

PATIENT
  Age: 74 Year
  Sex: Male

DRUGS (8)
  1. LASIX [Concomitant]
  2. ZESTRIL [Suspect]
     Indication: CARDIAC FAILURE CONGESTIVE
     Dosage: 5 MG, QD, ORAL
     Route: 048
  3. LANOXIN [Concomitant]
  4. GLYBURIDE [Concomitant]
  5. PLETAL [Suspect]
     Dosage: ORAL
     Route: 048
     Dates: start: 19990101, end: 19990910
  6. LESCOL [Concomitant]
  7. KAY CIEL DURA-TABS [Concomitant]
  8. IMDUR [Concomitant]

REACTIONS (6)
  - BLOOD ALBUMIN DECREASED [None]
  - VOMITING [None]
  - BLOOD CREATININE INCREASED [None]
  - NAUSEA [None]
  - PANCREATITIS [None]
  - BLOOD UREA INCREASED [None]
